FAERS Safety Report 16260234 (Version 2)
Quarter: 2019Q2

REPORT INFORMATION
  Report Type: Spontaneous
  Country: US (occurrence: US)
  Receive Date: 20190501
  Receipt Date: 20190611
  Transmission Date: 20190711
  Serious: Yes (Other)
  Sender: FDA-Public Use
  Company Number: US-PFIZER INC-2019174596

PATIENT
  Age: 82 Year
  Sex: Male
  Weight: 56.3 kg

DRUGS (3)
  1. VFEND [Suspect]
     Active Substance: VORICONAZOLE
     Indication: ORAL CANDIDIASIS
     Dosage: 5 ML, 2X/DAY (200MG/ 5ML EVERY 12 HRS)
     Route: 048
  2. VFEND [Suspect]
     Active Substance: VORICONAZOLE
     Indication: FUNGAL INFECTION
  3. VFEND [Suspect]
     Active Substance: VORICONAZOLE
     Indication: CANDIDA INFECTION
     Dosage: 200 MG, 2X/DAY, (EVERY 12 HOURS)
     Dates: start: 201905

REACTIONS (10)
  - Hallucination, visual [Unknown]
  - Weight decreased [Not Recovered/Not Resolved]
  - Swelling face [Not Recovered/Not Resolved]
  - Epstein-Barr virus test positive [Unknown]
  - Tooth discolouration [Not Recovered/Not Resolved]
  - Peripheral swelling [Not Recovered/Not Resolved]
  - Joint swelling [Not Recovered/Not Resolved]
  - Lymph node pain [Unknown]
  - Lip swelling [Not Recovered/Not Resolved]
  - Nausea [Unknown]

NARRATIVE: CASE EVENT DATE: 201905
